FAERS Safety Report 5585640-9 (Version None)
Quarter: 2008Q1

REPORT INFORMATION
  Report Type: 
  Country: None (occurrence: None)
  Receive Date: 20080109
  Receipt Date: 20071207
  Transmission Date: 20080703
  Serious: No
  Sender: FDA-Public Use
  Company Number: US-BAYER-200712593BCC

PATIENT
  Age: 79 Year
  Sex: Female
  Weight: 57 kg

DRUGS (5)
  1. ALEVE [Suspect]
     Indication: SCIATICA
     Dosage: TOTAL DAILY DOSE: 440 MG  UNIT DOSE: 220 MG
     Route: 048
     Dates: start: 20070601
  2. FOSAMAX [Concomitant]
  3. CALCIUM TABLETS [Concomitant]
  4. TRIAMTERENE AND HYDROCHLOROTHIAZIDE [Concomitant]
  5. FISH OIL [Concomitant]

REACTIONS (1)
  - FOREIGN BODY TRAUMA [None]
